FAERS Safety Report 7639157-8 (Version None)
Quarter: 2011Q3

REPORT INFORMATION
  Report Type: 
  Country: None (occurrence: None)
  Receive Date: 20110727
  Receipt Date: 20110718
  Transmission Date: 20111222
  Serious: Yes (Hospitalization, Other)
  Sender: FDA-Public Use
  Company Number: US-AMGEN-USASP2011036452

PATIENT
  Age: 56 Year
  Sex: Male

DRUGS (2)
  1. METHOTREXATE [Concomitant]
  2. ENBREL [Suspect]
     Indication: RHEUMATOID ARTHRITIS
     Dosage: 50 MG, QWK
     Dates: start: 20101119

REACTIONS (3)
  - RHEUMATOID ARTHRITIS [None]
  - SINUSITIS [None]
  - NEPHROLITHIASIS [None]
